FAERS Safety Report 5375852-1 (Version None)
Quarter: 2007Q3

REPORT INFORMATION
  Report Type: 
  Country: None (occurrence: None)
  Receive Date: 20070702
  Receipt Date: 20070619
  Transmission Date: 20080115
  Serious: Yes (Life-Threatening, Hospitalization, Other)
  Sender: FDA-Public Use
  Company Number: PHHO2007DE07825

PATIENT
  Age: 32 Year
  Sex: Male

DRUGS (2)
  1. SANDIMMUNE [Suspect]
     Indication: LIVER TRANSPLANT
     Dosage: 100 - 200 MG/DAY
     Route: 042
     Dates: start: 20061218, end: 20070615
  2. NEORAL [Suspect]
     Indication: LIVER TRANSPLANT
     Dosage: 150 MG, QD
     Route: 048
     Dates: start: 20070120

REACTIONS (8)
  - CARDIOVASCULAR INSUFFICIENCY [None]
  - CATHETER PLACEMENT [None]
  - LAPAROTOMY [None]
  - LUNG DISORDER [None]
  - POST PROCEDURAL HAEMORRHAGE [None]
  - RENAL FAILURE [None]
  - RESPIRATORY FAILURE [None]
  - TRACHEOSTOMY [None]
